FAERS Safety Report 5934087-1 (Version None)
Quarter: 2008Q4

REPORT INFORMATION
  Report Type: 
  Country: None (occurrence: None)
  Receive Date: 20081029
  Receipt Date: 20081021
  Transmission Date: 20090506
  Serious: Yes (Life-Threatening, Hospitalization)
  Sender: FDA-Public Use
  Company Number: CA-MERCK-0808CAN00091

PATIENT
  Age: 7 Year
  Sex: Male
  Weight: 21 kg

DRUGS (4)
  1. SINGULAIR [Suspect]
     Indication: ASTHMA
     Route: 048
     Dates: start: 20080522
  2. SINGULAIR [Suspect]
     Indication: RHINITIS ALLERGIC
     Route: 048
     Dates: start: 20080522
  3. ALBUTEROL [Concomitant]
     Indication: ASTHMA
     Route: 065
  4. BECLOMETHASONE DIPROPIONATE [Concomitant]
     Indication: ASTHMA
     Dates: start: 20070131

REACTIONS (3)
  - ASTHMATIC CRISIS [None]
  - BRONCHOPNEUMONIA [None]
  - OVERDOSE [None]
